FAERS Safety Report 9913659 (Version 1)
Quarter: 2014Q1

REPORT INFORMATION
  Report Type: Spontaneous
  Country: US (occurrence: None)
  Receive Date: 20140219
  Receipt Date: 20140219
  Transmission Date: 20141002
  Serious: Yes (Hospitalization)
  Sender: FDA-Public Use
  Company Number: None

PATIENT
  Age: 75 Year
  Sex: Female
  Weight: 72.58 kg

DRUGS (12)
  1. MYRBETRIQ [Suspect]
     Indication: URINARY INCONTINENCE
     Dosage: 1 TABLET QD ORAL
     Route: 048
     Dates: start: 20130902, end: 20130905
  2. CLONAZEPAM [Concomitant]
  3. GLIMEPERIDE [Concomitant]
  4. CALTRATE [Concomitant]
  5. CINNAMON [Concomitant]
  6. DIOVAN [Concomitant]
  7. EFFEXOR [Concomitant]
  8. JANUVIA [Concomitant]
  9. METFORMIN [Concomitant]
  10. NEXIUM [Concomitant]
  11. OMEGA-3 [Concomitant]
  12. POTASSIUM CHLORIDE [Concomitant]

REACTIONS (7)
  - Chest pain [None]
  - Rash pruritic [None]
  - Discomfort [None]
  - Sensation of foreign body [None]
  - Rash [None]
  - Rash [None]
  - Myocardial infarction [None]
